FAERS Safety Report 13352486 (Version 1)
Quarter: 2017Q1

REPORT INFORMATION
  Report Type: Spontaneous
  Country: US (occurrence: US)
  Receive Date: 20170320
  Receipt Date: 20170320
  Transmission Date: 20170429
  Serious: No
  Sender: FDA-Public Use
  Company Number: US-ALLERGAN-1662463US

PATIENT
  Age: 58 Year
  Sex: Female

DRUGS (2)
  1. OXYBUTIN [Concomitant]
     Active Substance: OXYBUTYNIN
     Indication: HYPERTONIC BLADDER
     Dosage: 5 MG, UNK
     Route: 048
     Dates: end: 20160628
  2. OXYTROL [Suspect]
     Active Substance: OXYBUTYNIN
     Indication: HYPERTONIC BLADDER
     Dosage: 1 PATCH EVERY 4 DAYS
     Route: 062
     Dates: start: 20160629, end: 20160708

REACTIONS (3)
  - Inappropriate schedule of drug administration [Unknown]
  - Rash pruritic [Not Recovered/Not Resolved]
  - Rash erythematous [Not Recovered/Not Resolved]

NARRATIVE: CASE EVENT DATE: 20160702
